FAERS Safety Report 13419513 (Version 3)
Quarter: 2017Q2

REPORT INFORMATION
  Report Type: Spontaneous
  Country: US (occurrence: US)
  Receive Date: 20170407
  Receipt Date: 20170425
  Transmission Date: 20170830
  Serious: No
  Sender: FDA-Public Use
  Company Number: US-JNJFOC-20170226329

PATIENT
  Sex: Female
  Weight: 104.33 kg

DRUGS (14)
  1. INVEGA [Suspect]
     Active Substance: PALIPERIDONE
     Indication: PRODUCT USED FOR UNKNOWN INDICATION
     Route: 048
  2. INVEGA SUSTENNA [Suspect]
     Active Substance: PALIPERIDONE PALMITATE
     Indication: BRAIN NEOPLASM
     Route: 030
  3. NAPROXEN. [Concomitant]
     Active Substance: NAPROXEN
     Indication: PAIN
     Dosage: 1 IN THE MORNING AND ONCE AT NIGHT
     Route: 065
     Dates: start: 20161223
  4. INVEGA SUSTENNA [Suspect]
     Active Substance: PALIPERIDONE PALMITATE
     Indication: BIPOLAR DISORDER
     Route: 030
  5. TOPAMAX [Concomitant]
     Active Substance: TOPIRAMATE
     Indication: HUNGER
     Dosage: 1 IN THE MORNING AND ONCE AT NIGHT
     Route: 048
  6. TOPAMAX [Concomitant]
     Active Substance: TOPIRAMATE
     Indication: AFFECTIVE DISORDER
     Dosage: 1 IN THE MORNING AND ONCE AT NIGHT
     Route: 048
  7. INVEGA SUSTENNA [Suspect]
     Active Substance: PALIPERIDONE PALMITATE
     Indication: BIPOLAR DISORDER
     Route: 030
     Dates: start: 20170117
  8. INVEGA SUSTENNA [Suspect]
     Active Substance: PALIPERIDONE PALMITATE
     Indication: BRAIN NEOPLASM
     Route: 030
     Dates: start: 20170117
  9. INVEGA SUSTENNA [Suspect]
     Active Substance: PALIPERIDONE PALMITATE
     Indication: NEOPLASM MALIGNANT
     Route: 030
  10. INVEGA SUSTENNA [Suspect]
     Active Substance: PALIPERIDONE PALMITATE
     Indication: NEOPLASM MALIGNANT
     Route: 030
     Dates: start: 20170117
  11. INVEGA SUSTENNA [Suspect]
     Active Substance: PALIPERIDONE PALMITATE
     Indication: SCHIZOAFFECTIVE DISORDER
     Route: 030
  12. LITHIUM CARBONATE. [Concomitant]
     Active Substance: LITHIUM CARBONATE
     Dosage: 1 IN THE MORNING AND ONCE AT NIGHT
     Route: 065
     Dates: start: 20170221
  13. INVEGA SUSTENNA [Suspect]
     Active Substance: PALIPERIDONE PALMITATE
     Indication: SCHIZOAFFECTIVE DISORDER
     Route: 030
     Dates: start: 20170117
  14. RISPERIDIONE [Suspect]
     Active Substance: RISPERIDONE
     Indication: PRODUCT USED FOR UNKNOWN INDICATION
     Route: 065

REACTIONS (13)
  - Drug dose omission [Unknown]
  - Drug ineffective [Unknown]
  - Hypertension [Unknown]
  - Incorrect dose administered [Unknown]
  - Pain [Unknown]
  - Drug effect increased [None]
  - Off label use [Unknown]
  - Inappropriate schedule of drug administration [Unknown]
  - Product quality issue [Unknown]
  - Weight increased [Unknown]
  - Gait disturbance [None]
  - Fatigue [Unknown]
  - Therapeutic response unexpected [Unknown]
